FAERS Safety Report 10549155 (Version 1)
Quarter: 2014Q4

REPORT INFORMATION
  Report Type: Spontaneous
  Country: US (occurrence: None)
  Receive Date: 20141016
  Receipt Date: 20141016
  Transmission Date: 20150529
  Serious: No
  Sender: FDA-Public Use
  Company Number: CABO-14004394

PATIENT
  Age: 57 Year
  Sex: Male
  Weight: 70.9 kg

DRUGS (3)
  1. LISINOPRIL. [Concomitant]
     Active Substance: LISINOPRIL
  2. ATENOLOL. [Concomitant]
     Active Substance: ATENOLOL
  3. COMETRIQ [Suspect]
     Active Substance: CABOZANTINIB S-MALATE
     Indication: THYROID CANCER
     Route: 048
     Dates: start: 20140525

REACTIONS (19)
  - Stomatitis [None]
  - Dry skin [None]
  - Haemorrhoids [None]
  - Hyperhidrosis [None]
  - Throat irritation [None]
  - Dizziness [None]
  - Hair colour changes [None]
  - Abdominal distension [None]
  - Feeling abnormal [None]
  - Rhinitis [None]
  - Diarrhoea [None]
  - Hepatic pain [None]
  - Erythema [None]
  - Therapeutic response unexpected [None]
  - Chills [None]
  - Sinusitis [None]
  - Glossitis [None]
  - Oral pain [None]
  - Fatigue [None]

NARRATIVE: CASE EVENT DATE: 20140608
